FAERS Safety Report 4829127-7 (Version None)
Quarter: 2005Q4

REPORT INFORMATION
  Report Type: 
  Country: None (occurrence: None)
  Receive Date: 20051031
  Receipt Date: 20041021
  Transmission Date: 20060501
  Serious: Yes (Other)
  Sender: FDA-Public Use
  Company Number: 200418125US

PATIENT
  Sex: Male

DRUGS (1)
  1. ARAVA [Suspect]
     Dates: end: 20041001

REACTIONS (2)
  - DERMATITIS EXFOLIATIVE [None]
  - VOMITING [None]
